FAERS Safety Report 4588821-6 (Version None)
Quarter: 2005Q1

REPORT INFORMATION
  Report Type: 
  Country: None (occurrence: None)
  Receive Date: 20050222
  Receipt Date: 20041124
  Transmission Date: 20050727
  Serious: Yes (Hospitalization)
  Sender: FDA-Public Use
  Company Number: FR-BRISTOL-MYERS SQUIBB COMPANY-12776688

PATIENT
  Age: 54 Year
  Sex: Female
  Weight: 67 kg

DRUGS (3)
  1. APROVEL TABS 150 MG [Suspect]
     Indication: HYPERTENSION
     Route: 048
     Dates: start: 20021002, end: 20040924
  2. LEVOTHYROX [Concomitant]
     Dates: start: 19990101
  3. LIVIAL [Concomitant]
     Dates: start: 20000101, end: 20030601

REACTIONS (2)
  - CYTOLYTIC HEPATITIS [None]
  - HEPATORENAL SYNDROME [None]
